FAERS Safety Report 13266439 (Version 1)
Quarter: 2017Q1

REPORT INFORMATION
  Report Type: Spontaneous
  Country: US (occurrence: US)
  Receive Date: 20170223
  Receipt Date: 20170223
  Transmission Date: 20170428
  Serious: Yes (Other)
  Sender: FDA-Public Use
  Company Number: US-VIFOR (INTERNATIONAL) INC.-VIT-2017-01679

PATIENT
  Sex: Female

DRUGS (2)
  1. COQ10 [Concomitant]
     Active Substance: UBIDECARENONE
  2. VELTASSA [Suspect]
     Active Substance: PATIROMER
     Indication: HYPERKALAEMIA
     Route: 048
     Dates: start: 20170105, end: 2017

REACTIONS (3)
  - Constipation [Unknown]
  - Blood pressure increased [Unknown]
  - Vascular rupture [Unknown]

NARRATIVE: CASE EVENT DATE: 2017
